FAERS Safety Report 13636022 (Version 1)
Quarter: 2017Q2

REPORT INFORMATION
  Report Type: Spontaneous
  Country: US (occurrence: US)
  Receive Date: 20170531
  Receipt Date: 20170531
  Transmission Date: 20170830
  Serious: No
  Sender: FDA-Public Use
  Company Number: US-ASTELLAS-1771535

PATIENT
  Sex: Male

DRUGS (5)
  1. FAMVIR (UNITED STATES) [Concomitant]
  2. ACYCLOVIR. [Concomitant]
     Active Substance: ACYCLOVIR
  3. ASPIRIN. [Concomitant]
     Active Substance: ASPIRIN
  4. DOXYCYCLINE HYCLATE. [Concomitant]
     Active Substance: DOXYCYCLINE HYCLATE
  5. TARCEVA [Suspect]
     Active Substance: ERLOTINIB HYDROCHLORIDE
     Indication: ANAEMIA
     Route: 048
     Dates: start: 20160527

REACTIONS (2)
  - Dermatitis acneiform [Unknown]
  - Rash [Unknown]
